FAERS Safety Report 14656776 (Version 1)
Quarter: 2018Q1

REPORT INFORMATION
  Report Type: Spontaneous
  Country: US (occurrence: US)
  Receive Date: 20180319
  Receipt Date: 20180319
  Transmission Date: 20180509
  Serious: No
  Sender: FDA-Public Use
  Company Number: US-SA-2017SA065321

PATIENT
  Age: 77 Year
  Sex: Male

DRUGS (2)
  1. NASACORT ALLERGY 24HR [Suspect]
     Active Substance: TRIAMCINOLONE ACETONIDE
     Indication: RHINORRHOEA
     Dosage: ONE SPRAY IN EACH NOSTRIL ONLY ONCE A DAY
     Route: 065
  2. NASACORT ALLERGY 24HR [Suspect]
     Active Substance: TRIAMCINOLONE ACETONIDE
     Indication: SNEEZING
     Dosage: ONE SPRAY IN EACH NOSTRIL ONLY ONCE A DAY
     Route: 065

REACTIONS (5)
  - Nasal discomfort [Recovered/Resolved]
  - Anosmia [Not Recovered/Not Resolved]
  - Ageusia [Not Recovered/Not Resolved]
  - Product odour abnormal [Unknown]
  - Drug ineffective [Unknown]
